FAERS Safety Report 17297436 (Version 5)
Quarter: 2021Q3

REPORT INFORMATION
  Report Type: Report from Study
  Country: HU (occurrence: HU)
  Receive Date: 20200121
  Receipt Date: 20210930
  Transmission Date: 20211014
  Serious: Yes (Other)
  Sender: FDA-Public Use
  Company Number: NVSC2020HU011388

PATIENT
  Age: 60 Year
  Sex: Female

DRUGS (4)
  1. KISQALI [Suspect]
     Active Substance: RIBOCICLIB
     Dosage: UNK
     Route: 065
     Dates: start: 20191219
  2. KISQALI [Suspect]
     Active Substance: RIBOCICLIB
     Dosage: CYCLE II
     Route: 065
     Dates: start: 20200116
  3. KISQALI [Suspect]
     Active Substance: RIBOCICLIB
     Indication: BREAST CANCER
     Dosage: 600 MG, 1X
     Route: 048
     Dates: start: 20191216, end: 20210818
  4. KISQALI [Suspect]
     Active Substance: RIBOCICLIB
     Dosage: UNK
     Route: 065
     Dates: end: 20210818

REACTIONS (9)
  - Breast cancer [Unknown]
  - Metastases to bone [Unknown]
  - Skin reaction [Unknown]
  - Carcinoembryonic antigen [Unknown]
  - Hypoaesthesia [Unknown]
  - Carbohydrate antigen 15-3 [Unknown]
  - Metastases to liver [Unknown]
  - Thoracic vertebral fracture [Unknown]
  - Malignant neoplasm progression [Unknown]

NARRATIVE: CASE EVENT DATE: 20201013
